FAERS Safety Report 7268974-1 (Version None)
Quarter: 2011Q1

REPORT INFORMATION
  Report Type: 
  Country: None (occurrence: None)
  Receive Date: 20110201
  Receipt Date: 20110107
  Transmission Date: 20110831
  Serious: No
  Sender: FDA-Public Use
  Company Number: US-BAYER-2011-004479

PATIENT
  Sex: Female
  Weight: 57.596 kg

DRUGS (1)
  1. ULTRAVIST 150 [Suspect]
     Indication: COMPUTERISED TOMOGRAM THORAX
     Dosage: 100 ML, ONCE
     Route: 042
     Dates: start: 20110107, end: 20110107

REACTIONS (3)
  - ERYTHEMA [None]
  - SWELLING [None]
  - DYSPHAGIA [None]
